FAERS Safety Report 12857427 (Version 1)
Quarter: 2016Q4

REPORT INFORMATION
  Report Type: Spontaneous
  Country: NO (occurrence: NO)
  Receive Date: 20161018
  Receipt Date: 20161018
  Transmission Date: 20170207
  Serious: Yes (Hospitalization)
  Sender: FDA-Public Use
  Company Number: NO-009507513-1610NOR008186

PATIENT
  Age: 12 Year
  Sex: Male

DRUGS (3)
  1. ALUTARD SQ [Suspect]
     Active Substance: ALLERGENIC EXTRACTS
     Indication: SEASONAL ALLERGY
     Dosage: UNK UNK, UNKNOWN
     Route: 058
  2. AERIUS [Concomitant]
     Active Substance: DESLORATADINE
  3. TIMOTHY GRASS POLLEN ALLERGEN EXTRACT [Suspect]
     Active Substance: PHLEUM PRATENSE POLLEN
     Indication: SEASONAL ALLERGY
     Dosage: 75.000 SQ-T, DOSE AND FREQUENCY WERE UNKNOWN
     Route: 048

REACTIONS (6)
  - Pyrexia [Not Recovered/Not Resolved]
  - Abdominal pain [Not Recovered/Not Resolved]
  - Arthralgia [Not Recovered/Not Resolved]
  - Joint swelling [Not Recovered/Not Resolved]
  - Urticaria [Not Recovered/Not Resolved]
  - Malaise [Not Recovered/Not Resolved]

NARRATIVE: CASE EVENT DATE: 20160907
